FAERS Safety Report 4834222-2 (Version None)
Quarter: 2005Q4

REPORT INFORMATION
  Report Type: 
  Country: None (occurrence: None)
  Receive Date: 20051122
  Receipt Date: 20051025
  Transmission Date: 20060501
  Serious: Yes (Life-Threatening, Hospitalization)
  Sender: FDA-Public Use
  Company Number: JP-BRISTOL-MYERS SQUIBB COMPANY-13170147

PATIENT
  Age: 68 Year
  Sex: Female

DRUGS (4)
  1. ENDOXAN [Suspect]
     Dates: start: 20051017, end: 20051017
  2. FARMORUBICIN [Suspect]
     Dates: start: 20051017, end: 20051017
  3. SUNRYTHM [Suspect]
     Route: 048
  4. FLUOROURACIL [Concomitant]
     Dates: start: 20051017, end: 20051017

REACTIONS (1)
  - VENTRICULAR FIBRILLATION [None]
